FAERS Safety Report 14348441 (Version 4)
Quarter: 2018Q2

REPORT INFORMATION
  Report Type: Spontaneous
  Country: PL (occurrence: PL)
  Receive Date: 20180103
  Receipt Date: 20180605
  Transmission Date: 20180711
  Serious: Yes (Hospitalization, Other)
  Sender: FDA-Public Use
  Company Number: PL-009507513-1712POL014377

PATIENT
  Age: 44 Year
  Sex: Male

DRUGS (12)
  1. IMIPENEM AND CILASTATIN [Suspect]
     Active Substance: CILASTATIN SODIUM\IMIPENEM
     Indication: PROPHYLAXIS
     Dosage: 500/500 MG TID
     Dates: start: 201405
  2. IMIPENEM AND CILASTATIN [Suspect]
     Active Substance: CILASTATIN SODIUM\IMIPENEM
     Indication: PNEUMONIA KLEBSIELLA
  3. AMIKACIN SULFATE. [Suspect]
     Active Substance: AMIKACIN SULFATE
     Indication: URINARY TRACT INFECTION
     Dosage: 500 MG, QD
     Route: 065
     Dates: start: 2014, end: 2014
  4. MEROPENEM. [Suspect]
     Active Substance: MEROPENEM
     Indication: PATHOGEN RESISTANCE
  5. AMIKACIN SULFATE. [Suspect]
     Active Substance: AMIKACIN SULFATE
     Indication: PNEUMONIA KLEBSIELLA
  6. IMIPENEM AND CILASTATIN [Suspect]
     Active Substance: CILASTATIN SODIUM\IMIPENEM
     Indication: URINARY TRACT INFECTION
     Dosage: 3000 MG, QD
     Route: 065
     Dates: start: 20140101, end: 20140101
  7. IMIPENEM AND CILASTATIN [Suspect]
     Active Substance: CILASTATIN SODIUM\IMIPENEM
     Indication: PATHOGEN RESISTANCE
  8. FOSFOMYCIN [Suspect]
     Active Substance: FOSFOMYCIN
     Indication: PROPHYLAXIS URINARY TRACT INFECTION
  9. AMIKACIN SULFATE. [Suspect]
     Active Substance: AMIKACIN SULFATE
     Indication: PATHOGEN RESISTANCE
  10. FOSFOMYCIN [Suspect]
     Active Substance: FOSFOMYCIN
     Indication: URINARY TRACT INFECTION
     Dosage: 3 G, QW
     Route: 065
     Dates: start: 2014, end: 2014
  11. MEROPENEM. [Suspect]
     Active Substance: MEROPENEM
     Indication: PNEUMONIA KLEBSIELLA
     Dosage: UNK
     Route: 065
     Dates: start: 2014, end: 2014
  12. MEROPENEM. [Suspect]
     Active Substance: MEROPENEM
     Indication: URINARY TRACT INFECTION

REACTIONS (9)
  - Drug resistance [Unknown]
  - Pyrexia [Recovered/Resolved]
  - Klebsiella infection [Recovered/Resolved]
  - Drug ineffective [Unknown]
  - Urinary tract infection [Recovered/Resolved]
  - Pathogen resistance [Unknown]
  - Procalcitonin increased [Recovered/Resolved]
  - Pyuria [Recovered/Resolved]
  - C-reactive protein increased [Recovered/Resolved]

NARRATIVE: CASE EVENT DATE: 2014
